FAERS Safety Report 11175654 (Version 1)
Quarter: 2015Q2

REPORT INFORMATION
  Report Type: Report from Study
  Country: FR (occurrence: FR)
  Receive Date: 20150609
  Receipt Date: 20150609
  Transmission Date: 20150821
  Serious: Yes (Hospitalization)
  Sender: FDA-Public Use
  Company Number: FR-GLAXOSMITHKLINE-FR2015GSK077585

PATIENT
  Age: 41 Year
  Sex: Male

DRUGS (8)
  1. DISCOTRINE [Concomitant]
     Active Substance: NITROGLYCERIN
  2. TEMERIT [Concomitant]
     Active Substance: NEBIVOLOL
  3. OMEGA-3-ACID ETHYL ESTERS. [Suspect]
     Active Substance: OMEGA-3-ACID ETHYL ESTERS
     Indication: MYOCARDIAL INFARCTION
     Dosage: UNK
     Route: 048
     Dates: start: 20080423
  4. CRESTOR [Concomitant]
     Active Substance: ROSUVASTATIN CALCIUM
  5. TRIATEC [Concomitant]
     Active Substance: RAMIPRIL
  6. IKOREL [Concomitant]
     Active Substance: NICORANDIL
  7. KARDEGIC [Concomitant]
     Active Substance: ASPIRIN LYSINE
  8. PLAVIX [Concomitant]
     Active Substance: CLOPIDOGREL BISULFATE

REACTIONS (1)
  - Depression [Unknown]

NARRATIVE: CASE EVENT DATE: 20080626
